FAERS Safety Report 9775270 (Version 1)
Quarter: 2013Q4

REPORT INFORMATION
  Report Type: Spontaneous
  Country: US (occurrence: US)
  Receive Date: 20131220
  Receipt Date: 20131220
  Transmission Date: 20140711
  Serious: No
  Sender: FDA-Public Use
  Company Number: US-GALDERMA-US13003074

PATIENT
  Age: 31 Year
  Sex: Male

DRUGS (3)
  1. MIRVASO (BRIMONIDINE) TOPICAL GEL, 0.33% [Suspect]
     Indication: ERYTHEMA
     Dosage: 0.33%
     Route: 061
     Dates: start: 20131002
  2. UNKNOWN FACIAL CLEANSER [Concomitant]
     Indication: THERAPEUTIC SKIN CARE TOPICAL
     Route: 061
  3. UNKNOWN FACIAL MOISTURIZER [Concomitant]
     Indication: DRY SKIN PROPHYLAXIS
     Route: 061

REACTIONS (2)
  - Rash macular [Not Recovered/Not Resolved]
  - Condition aggravated [Not Recovered/Not Resolved]
